FAERS Safety Report 24588535 (Version 3)
Quarter: 2024Q4

REPORT INFORMATION
  Report Type: Report from Study
  Country: MX (occurrence: MX)
  Receive Date: 20241107
  Receipt Date: 20241213
  Transmission Date: 20250114
  Serious: Yes (Other)
  Sender: NOVARTIS
  Company Number: MX-002147023-NVSC2024MX016660

PATIENT
  Age: 69 Year
  Sex: Male
  Weight: 80 kg

DRUGS (12)
  1. TASIGNA [Suspect]
     Active Substance: NILOTINIB
     Indication: Chronic myeloid leukaemia
     Dosage: 200 MG, Q12H (2 IN THE MORNING AND 2 IN NIGHT)
     Route: 048
     Dates: start: 201211
  2. TASIGNA [Suspect]
     Active Substance: NILOTINIB
     Dosage: 400 MG, BID (400MG/2 OF 200MG)
     Route: 048
  3. TASIGNA [Suspect]
     Active Substance: NILOTINIB
     Dosage: 2 CAPSULES AND 1 CAPSULE
     Route: 048
  4. TASIGNA [Suspect]
     Active Substance: NILOTINIB
     Dosage: 200 MG, QD (4 X 200MG)
     Route: 048
     Dates: start: 20211122, end: 20240218
  5. TASIGNA [Suspect]
     Active Substance: NILOTINIB
     Dosage: 400 MG, BID (2X 200 MG)
     Route: 048
     Dates: start: 20211126
  6. TASIGNA [Suspect]
     Active Substance: NILOTINIB
     Dosage: 200 MG (2 OF 200 MG; IN THE MORNING AND 1 AT NIGHT)
     Route: 048
     Dates: start: 20240218, end: 20240226
  7. TASIGNA [Suspect]
     Active Substance: NILOTINIB
     Dosage: 200 MG, QD; 4X 200 MG (2 IN THE MORNING AND 2 AT NIGHT)
     Route: 048
     Dates: start: 20240227, end: 20240911
  8. TASIGNA [Suspect]
     Active Substance: NILOTINIB
     Dosage: 200 MG (2 IN THE MORNING AND 2 IN THE NIGHT)
     Route: 048
  9. TASIGNA [Suspect]
     Active Substance: NILOTINIB
     Dosage: 200 MG (2 IN THE MORNING AND 1 AT NIGHT)
     Route: 048
  10. TASIGNA [Suspect]
     Active Substance: NILOTINIB
     Dosage: 200 MG (2OF 200 MG IN THE MORNING AND 1 AT NIGHT
     Route: 048
     Dates: start: 202409, end: 202411
  11. TASIGNA [Suspect]
     Active Substance: NILOTINIB
     Dosage: 400 MG, BID (2 OF 200 MG IN MORNING AND 2 OF 200 MG IN NIGHT)
     Route: 048
  12. FERROUS SULFATE [Concomitant]
     Active Substance: FERROUS SULFATE
     Indication: Product used for unknown indication
     Dosage: 1 DOSAGE FORM, QD
     Route: 065

REACTIONS (11)
  - Fall [Recovered/Resolved]
  - Pain in extremity [Recovered/Resolved]
  - Haematoma [Recovered/Resolved]
  - Syncope [Recovered/Resolved]
  - Gait disturbance [Recovered/Resolved]
  - Red blood cell count decreased [Unknown]
  - Incorrect dosage administered [Recovered/Resolved]
  - Product availability issue [Recovered/Resolved]
  - Off label use [Unknown]
  - Asthenia [Recovered/Resolved]
  - Incorrect dosage administered [Recovered/Resolved]

NARRATIVE: CASE EVENT DATE: 20211101
